FAERS Safety Report 13565741 (Version 4)
Quarter: 2021Q4

REPORT INFORMATION
  Report Type: Spontaneous
  Country: FR (occurrence: FR)
  Receive Date: 20170520
  Receipt Date: 20211123
  Transmission Date: 20220303
  Serious: Yes (Hospitalization, Disabling, Congenital Anomaly, Other)
  Sender: FDA-Public Use
  Company Number: FR-ABBVIE-15P-056-1432033-00

PATIENT
  Sex: Female

DRUGS (1)
  1. VALPROATE SODIUM [Suspect]
     Active Substance: VALPROATE SODIUM
     Indication: Maternal exposure timing unspecified
     Route: 064

REACTIONS (19)
  - Abnormal behaviour [Not Recovered/Not Resolved]
  - Ear infection [Unknown]
  - Bronchiolitis [Unknown]
  - Learning disorder [Unknown]
  - Facial asymmetry [Unknown]
  - Head deformity [Unknown]
  - Foetal exposure during pregnancy [Unknown]
  - Hypotonia [Unknown]
  - Attention deficit hyperactivity disorder [Unknown]
  - Executive dysfunction [Unknown]
  - Social problem [Unknown]
  - Speech disorder [Unknown]
  - Dysmorphism [Recovered/Resolved]
  - Exposure via breast milk [Unknown]
  - Hypermobility syndrome [Unknown]
  - Clinodactyly [Unknown]
  - Dysphemia [Unknown]
  - Epilepsy [Unknown]
  - Dyscalculia [Unknown]

NARRATIVE: CASE EVENT DATE: 20070101
